FAERS Safety Report 4996228-2 (Version None)
Quarter: 2006Q2

REPORT INFORMATION
  Report Type: 
  Country: None (occurrence: None)
  Receive Date: 20060508
  Receipt Date: 20060428
  Transmission Date: 20061013
  Serious: Yes (Other)
  Sender: FDA-Public Use
  Company Number: US-ABBOTT-06P-163-0332161-00

PATIENT
  Age: 5 Year
  Sex: Female

DRUGS (3)
  1. ULTANE LIQUID FOR INHALATION, 250ML PEN BOTTLE [Suspect]
     Indication: ANAESTHESIA
     Dates: start: 20060401, end: 20060401
  2. MIDAZOLAM HYDROCHLORIDE [Concomitant]
     Indication: DRUG USE FOR UNKNOWN INDICATION
  3. FENTANYL [Concomitant]
     Indication: DRUG USE FOR UNKNOWN INDICATION

REACTIONS (1)
  - DRUG EFFECT PROLONGED [None]
